FAERS Safety Report 4512131-6 (Version None)
Quarter: 2004Q4

REPORT INFORMATION
  Report Type: 
  Country: None (occurrence: None)
  Receive Date: 20041129
  Receipt Date: 20031117
  Transmission Date: 20050328
  Serious: No
  Sender: FDA-Public Use
  Company Number: US-GLAXOSMITHKLINE-A0439998A

PATIENT
  Age: 68 Year
  Sex: Male

DRUGS (3)
  1. LANOXIN [Suspect]
     Route: 048
     Dates: start: 20030901
  2. ACE INHIBITOR [Concomitant]
  3. BETA BLOCKER [Concomitant]

REACTIONS (1)
  - ASTHENIA [None]
